FAERS Safety Report 5546075-8 (Version None)
Quarter: 2007Q4

REPORT INFORMATION
  Report Type: 
  Country: None (occurrence: None)
  Receive Date: 20071211
  Receipt Date: 20071102
  Transmission Date: 20080405
  Serious: No
  Sender: FDA-Public Use
  Company Number: US-BRISTOL-MYERS SQUIBB COMPANY-13917265

PATIENT
  Age: 66 Year
  Sex: Female
  Weight: 78 kg

DRUGS (8)
  1. EMSAM [Suspect]
     Indication: NERVOUSNESS
     Dosage: EMSAM 20 MG/24 HR TRANSDERMAL PATCH.
     Route: 062
  2. HYZAAR [Concomitant]
  3. DICYCLOMINE [Concomitant]
  4. ALPRAZOLAM [Concomitant]
  5. VITAMIN B-12 [Concomitant]
  6. XALATAN [Concomitant]
  7. CLIMARA [Concomitant]
  8. XANAX [Concomitant]

REACTIONS (2)
  - APPLICATION SITE REACTION [None]
  - HYPERSENSITIVITY [None]
